FAERS Safety Report 6091759-9 (Version None)
Quarter: 2009Q1

REPORT INFORMATION
  Report Type: 
  Country: None (occurrence: None)
  Receive Date: 20090225
  Receipt Date: 20080527
  Transmission Date: 20090719
  Serious: No
  Sender: FDA-Public Use
  Company Number: A0729665A

PATIENT
  Age: 24 Year

DRUGS (2)
  1. VALTREX [Suspect]
     Indication: GENITAL HERPES
     Dosage: 500MG PER DAY
     Route: 048
     Dates: start: 20071123
  2. NO CONCURRENT MEDICATION [Concomitant]

REACTIONS (3)
  - HERPES VIRUS INFECTION [None]
  - IRRITABILITY [None]
  - MOOD ALTERED [None]
